FAERS Safety Report 4402305-7 (Version None)
Quarter: 2004Q3

REPORT INFORMATION
  Report Type: 
  Country: None (occurrence: None)
  Receive Date: 20040720
  Receipt Date: 20040707
  Transmission Date: 20050211
  Serious: Yes (Life-Threatening)
  Sender: FDA-Public Use
  Company Number: 372685

PATIENT
  Age: 55 Year
  Sex: Male

DRUGS (2)
  1. CARVEDILOL [Suspect]
     Dosage: 2.5MG PER DAY
     Route: 048
     Dates: start: 20040215, end: 20040610
  2. AMIODARONE HCL [Suspect]
     Route: 048
     Dates: start: 20040215

REACTIONS (4)
  - BLOOD PRESSURE DECREASED [None]
  - HEART RATE DECREASED [None]
  - SEPSIS [None]
  - SHOCK [None]
